FAERS Safety Report 8593602-2 (Version None)
Quarter: 2012Q3

REPORT INFORMATION
  Report Type: 
  Country: None (occurrence: None)
  Receive Date: 20120814
  Receipt Date: 20120726
  Transmission Date: 20120928
  Serious: Yes (Hospitalization)
  Sender: FDA-Public Use
  Company Number: JP-009507513-1208JPN005179

PATIENT

DRUGS (10)
  1. REBETOL [Suspect]
     Indication: HEPATITIS C
     Route: 048
     Dates: start: 20120529
  2. OLMESARTAN MEDOXOMIL [Concomitant]
     Indication: HYPERTENSION
     Route: 048
  3. LOXONIN [Concomitant]
     Indication: PROPHYLAXIS
     Route: 048
     Dates: start: 20120529
  4. TELAVIC [Suspect]
     Route: 048
     Dates: start: 20120704
  5. TELAVIC [Suspect]
     Route: 048
     Dates: start: 20120529, end: 20120703
  6. TELAVIC [Suspect]
     Indication: HEPATITIS C
     Route: 048
     Dates: start: 20120529
  7. ZOLPIDEM [Concomitant]
     Indication: INSOMNIA
     Route: 048
  8. PEG-INTRON [Suspect]
     Indication: HEPATITIS C
     Dosage: 1.3MCG/KG/WEEK
     Route: 058
     Dates: start: 20120529
  9. REBAMIPIDE [Concomitant]
     Indication: PROPHYLAXIS
     Route: 048
     Dates: start: 20120529
  10. AMLODIPINE [Concomitant]
     Indication: HYPERTENSION
     Route: 048

REACTIONS (2)
  - DEPRESSION [None]
  - MALAISE [None]
